FAERS Safety Report 6732149-2 (Version None)
Quarter: 2010Q2

REPORT INFORMATION
  Report Type: 
  Country: None (occurrence: None)
  Receive Date: 20100519
  Receipt Date: 20100505
  Transmission Date: 20101027
  Serious: Yes (Other)
  Sender: FDA-Public Use
  Company Number: FR-SANOFI-AVENTIS-2010SA028070

PATIENT
  Age: 59 Year
  Sex: Male

DRUGS (2)
  1. FLUDARABINE PHOSPHATE [Suspect]
     Dosage: 5 DAYS PER MONTH
     Route: 048
     Dates: start: 20060601
  2. CYCLOPHOSPHAMIDE [Concomitant]
     Dosage: 5 DAYS PER MONTH
     Route: 048
     Dates: start: 20060601

REACTIONS (2)
  - CHRONIC LYMPHOCYTIC LEUKAEMIA TRANSFORMATION [None]
  - EPSTEIN-BARR VIRUS TEST POSITIVE [None]
